FAERS Safety Report 4970783-0 (Version None)
Quarter: 2006Q2

REPORT INFORMATION
  Report Type: 
  Country: None (occurrence: None)
  Receive Date: 20060412
  Receipt Date: 20060405
  Transmission Date: 20061013
  Serious: Yes (Hospitalization)
  Sender: FDA-Public Use
  Company Number: FR-ROCHE-443495

PATIENT
  Age: 45 Year
  Sex: Male

DRUGS (1)
  1. ROCEPHIN [Suspect]
     Indication: DRUG USE FOR UNKNOWN INDICATION
     Dosage: FORMULATION REPORTED AS: INJECTABLE SOLUTION.
     Route: 042
     Dates: start: 20051118, end: 20051118

REACTIONS (1)
  - FACE OEDEMA [None]
